FAERS Safety Report 9066023 (Version 5)
Quarter: 2013Q4

REPORT INFORMATION
  Report Type: Spontaneous
  Country: US (occurrence: US)
  Receive Date: 20130201
  Receipt Date: 20131008
  Transmission Date: 20140711
  Serious: Yes (Hospitalization, Other)
  Sender: FDA-Public Use
  Company Number: US-MERCK-1301USA014653

PATIENT
  Sex: Female

DRUGS (4)
  1. FOSAMAX [Suspect]
     Indication: OSTEOPOROSIS
     Dosage: 70 MG, UNK
     Route: 048
     Dates: start: 20030130, end: 20030714
  2. FOSAMAX [Suspect]
     Dosage: 70 MG, UNK
     Route: 048
     Dates: start: 20050729, end: 20080205
  3. FOSAMAX [Suspect]
     Dosage: 70 MG, UNK
     Route: 048
  4. ALENDRONATE SODIUM [Suspect]
     Indication: OSTEOPOROSIS
     Dosage: 70 MG, UNK
     Route: 048
     Dates: start: 20080304, end: 20111120

REACTIONS (12)
  - Femur fracture [Recovering/Resolving]
  - Intramedullary rod insertion [Unknown]
  - Anaemia postoperative [Recovering/Resolving]
  - Lung neoplasm malignant [Unknown]
  - Low turnover osteopathy [Unknown]
  - Rheumatoid arthritis [Unknown]
  - Hiatus hernia [Unknown]
  - Fractured sacrum [Unknown]
  - Osteoarthritis [Unknown]
  - Radiculitis lumbosacral [Unknown]
  - Gallbladder operation [Unknown]
  - Nausea [Unknown]
